FAERS Safety Report 17150802 (Version 1)
Quarter: 2019Q4

REPORT INFORMATION
  Report Type: Spontaneous
  Country: US (occurrence: US)
  Receive Date: 20191212
  Receipt Date: 20191212
  Transmission Date: 20200122
  Serious: Yes (Hospitalization, Disabling)
  Sender: FDA-Public Use
  Company Number: None

PATIENT
  Age: 50 Year
  Sex: Female
  Weight: 80.55 kg

DRUGS (2)
  1. AREDIA [Suspect]
     Active Substance: PAMIDRONATE DISODIUM
     Indication: PRODUCT USED FOR UNKNOWN INDICATION
     Dates: start: 19981013, end: 20071014
  2. ZOMETA [Suspect]
     Active Substance: ZOLEDRONIC ACID

REACTIONS (7)
  - Fall [None]
  - Pathological fracture [None]
  - Internal fixation of fracture [None]
  - Femur fracture [None]
  - Device failure [None]
  - Nerve compression [None]
  - Osteonecrosis of jaw [None]

NARRATIVE: CASE EVENT DATE: 20061215
